FAERS Safety Report 5153715-4 (Version None)
Quarter: 2006Q4

REPORT INFORMATION
  Report Type: 
  Country: None (occurrence: None)
  Receive Date: 20061118
  Receipt Date: 20061110
  Transmission Date: 20070319
  Serious: Yes (Other)
  Sender: FDA-Public Use
  Company Number: US-JNJFOC-20061103440

PATIENT
  Sex: Female
  Weight: 51.26 kg

DRUGS (7)
  1. REMICADE [Suspect]
     Indication: RHEUMATOID ARTHRITIS
  2. AVINZA [Concomitant]
  3. MOBIC [Concomitant]
  4. CARTIA XT [Concomitant]
  5. WARFARIN SODIUM [Concomitant]
  6. HYDROCHLOROTHIAZIDE [Concomitant]
  7. METHYLPREDNISOLONE [Concomitant]

REACTIONS (3)
  - BLOOD POTASSIUM DECREASED [None]
  - DIARRHOEA [None]
  - ELECTROLYTE DEPLETION [None]
